FAERS Safety Report 6024514-6 (Version None)
Quarter: 2008Q4

REPORT INFORMATION
  Report Type: 
  Country: None (occurrence: None)
  Receive Date: 20081231
  Receipt Date: 20080925
  Transmission Date: 20090506
  Serious: No
  Sender: FDA-Public Use
  Company Number: US-BRISTOL-MYERS SQUIBB COMPANY-14347520

PATIENT
  Age: 42 Year
  Sex: Female

DRUGS (6)
  1. ORENCIA [Suspect]
     Indication: RHEUMATOID ARTHRITIS
     Dates: start: 20080819
  2. LISINOPRIL [Suspect]
     Indication: HYPERTENSION
  3. PREVACID [Concomitant]
  4. PREDNISONE [Concomitant]
  5. IMURAN [Concomitant]
  6. CLONAZEPAM [Concomitant]

REACTIONS (1)
  - BLOOD PRESSURE INCREASED [None]
